FAERS Safety Report 18509269 (Version 3)
Quarter: 2020Q4

REPORT INFORMATION
  Report Type: Spontaneous
  Country: DE (occurrence: DE)
  Receive Date: 20201117
  Receipt Date: 20201222
  Transmission Date: 20210114
  Serious: Yes (Other)
  Sender: FDA-Public Use
  Company Number: DE-REGENERON PHARMACEUTICALS, INC.-2020-88801

PATIENT

DRUGS (1)
  1. EYLEA [Suspect]
     Active Substance: AFLIBERCEPT
     Indication: DIABETIC RETINAL OEDEMA
     Dosage: 1 DF, ONCE; FIRST AND ONLY EYLEA INJECTION INTO RIGHT EYE
     Route: 031
     Dates: start: 20201105, end: 20201105

REACTIONS (2)
  - Toxic anterior segment syndrome [Not Recovered/Not Resolved]
  - Anterior chamber cell [Not Recovered/Not Resolved]

NARRATIVE: CASE EVENT DATE: 20201105
